FAERS Safety Report 10588722 (Version 2)
Quarter: 2014Q4

REPORT INFORMATION
  Report Type: Spontaneous
  Country: FR (occurrence: KE)
  Receive Date: 20141117
  Receipt Date: 20141117
  Transmission Date: 20150529
  Serious: Yes (Disabling)
  Sender: FDA-Public Use
  Company Number: FR-GLAXOSMITHKLINE-B1025353A

PATIENT
  Age: 11 Year
  Sex: Female
  Weight: 31 kg

DRUGS (1)
  1. MALARONE [Suspect]
     Active Substance: ATOVAQUONE\PROGUANIL HYDROCHLORIDE
     Indication: MALARIA PROPHYLAXIS
     Route: 065
     Dates: start: 20140720, end: 20140808

REACTIONS (15)
  - Myalgia [Not Recovered/Not Resolved]
  - Dry skin [Recovered/Resolved]
  - Scab [Recovered/Resolved]
  - Photosensitivity reaction [Recovering/Resolving]
  - Chapped lips [Recovered/Resolved]
  - Muscular weakness [Not Recovered/Not Resolved]
  - Gait disturbance [Recovering/Resolving]
  - Asthenia [Recovering/Resolving]
  - Cough [Recovered/Resolved]
  - Dysphagia [Not Recovered/Not Resolved]
  - Headache [Recovered/Resolved]
  - Sunburn [Recovering/Resolving]
  - Abdominal pain [Recovered/Resolved]
  - Pyrexia [Recovered/Resolved]
  - Dizziness [Recovering/Resolving]

NARRATIVE: CASE EVENT DATE: 201407
